FAERS Safety Report 7503716-3 (Version None)
Quarter: 2011Q2

REPORT INFORMATION
  Report Type: 
  Country: None (occurrence: None)
  Receive Date: 20110518
  Receipt Date: 20110502
  Transmission Date: 20111010
  Serious: Yes (Other)
  Sender: FDA-Public Use
  Company Number: 2010MA004887

PATIENT
  Age: 46 Year
  Sex: Male

DRUGS (4)
  1. CLOZARIL [Suspect]
     Indication: SCHIZOPHRENIA
     Dosage: 650 MG, QD, PO
     Route: 048
     Dates: start: 20080807
  2. TEMAZEPAM [Suspect]
     Indication: ANXIETY
     Dosage: PO
     Route: 048
  3. PROCYCLIDINE HYDROCHLORIDE 2MG TAB [Concomitant]
  4. VENLAFAXINE [Concomitant]

REACTIONS (1)
  - PROSTATE CANCER [None]
